FAERS Safety Report 13676759 (Version 1)
Quarter: 2017Q2

REPORT INFORMATION
  Report Type: Spontaneous
  Country: US (occurrence: US)
  Receive Date: 20170621
  Receipt Date: 20170621
  Transmission Date: 20170830
  Serious: Yes (Hospitalization)
  Sender: FDA-Public Use
  Company Number: None

PATIENT
  Age: 62 Year
  Sex: Female
  Weight: 112.5 kg

DRUGS (2)
  1. TAXOL [Suspect]
     Active Substance: PACLITAXEL
     Dates: end: 20121203
  2. CARBOPLATIN. [Suspect]
     Active Substance: CARBOPLATIN
     Dates: end: 20121203

REACTIONS (11)
  - Pyrexia [None]
  - Lymphadenopathy [None]
  - Heart rate increased [None]
  - White blood cell count increased [None]
  - Lymphoma [None]
  - Iron deficiency anaemia [None]
  - Lymphadenopathy mediastinal [None]
  - Cardiac valve disease [None]
  - Diastolic dysfunction [None]
  - Microcytic anaemia [None]
  - Connective tissue disorder [None]

NARRATIVE: CASE EVENT DATE: 20150907
